FAERS Safety Report 12217838 (Version 1)
Quarter: 2016Q1

REPORT INFORMATION
  Report Type: Report from Study
  Country: NL (occurrence: NL)
  Receive Date: 20160329
  Receipt Date: 20160329
  Transmission Date: 20160526
  Serious: Yes (Death, Other)
  Sender: FDA-Public Use
  Company Number: NL-AMGEN-NLDSL2016036667

PATIENT
  Age: 79 Year
  Sex: Male

DRUGS (10)
  1. SILODOSINE [Concomitant]
     Active Substance: SILODOSIN
  2. TRAMADOLI HYDROCHLORIDUM [Concomitant]
     Dosage: 50 MG, UNK
     Route: 048
     Dates: start: 20160127
  3. DEXAMETHASON                       /00016001/ [Concomitant]
     Active Substance: DEXAMETHASONE
     Dosage: 4 MG, UNK
     Dates: start: 20151229
  4. LIDOCAINE HCL [Concomitant]
     Active Substance: LIDOCAINE HYDROCHLORIDE
     Dosage: 2 %, UNK
     Dates: start: 20151016
  5. SOLIFENACINE [Concomitant]
     Dosage: 10 MG, UNK
     Dates: start: 20160209
  6. XGEVA [Suspect]
     Active Substance: DENOSUMAB
     Indication: PRODUCT USED FOR UNKNOWN INDICATION
     Dosage: 120 MG, Q4WK
     Route: 058
     Dates: start: 20150814, end: 20160225
  7. CALCIUM CARBONATE W/COLECALCIFEROL [Concomitant]
     Active Substance: CALCIUM CARBONATE\CHOLECALCIFEROL
     Dosage: 1.25 G/440 IE
     Dates: start: 20160125
  8. METFORMIN [Concomitant]
     Active Substance: METFORMIN HYDROCHLORIDE
     Dosage: 500 MG, UNK
     Route: 048
     Dates: start: 20160209
  9. SPIRONOLACTON [Concomitant]
     Active Substance: SPIRONOLACTONE
     Dosage: 50 MG, UNK
     Route: 048
     Dates: start: 20160209
  10. OMEPRAZOLE. [Concomitant]
     Active Substance: OMEPRAZOLE
     Dosage: 40 MG, UNK
     Route: 048
     Dates: start: 20160209

REACTIONS (9)
  - Death [Fatal]
  - Metastases to skin [Unknown]
  - Pain [Unknown]
  - Scrotal cyst [Unknown]
  - Pneumonia [Unknown]
  - Metastases to pelvis [Unknown]
  - Renal impairment [Recovered/Resolved]
  - Sepsis [Unknown]
  - Groin pain [Unknown]

NARRATIVE: CASE EVENT DATE: 20150908
